FAERS Safety Report 6379730-0 (Version None)
Quarter: 2009Q3

REPORT INFORMATION
  Report Type: 
  Country: None (occurrence: None)
  Receive Date: 20090928
  Receipt Date: 20090922
  Transmission Date: 20100115
  Serious: Yes (Death, Hospitalization)
  Sender: FDA-Public Use
  Company Number: ZA-AVENTIS-200920699GDDC

PATIENT
  Age: 73 Year
  Sex: Female

DRUGS (7)
  1. TAXOTERE [Suspect]
     Route: 042
     Dates: start: 20090630, end: 20090630
  2. TAXOTERE [Suspect]
     Route: 042
     Dates: start: 20090721, end: 20090721
  3. TAXOTERE [Suspect]
     Route: 042
     Dates: start: 20090811, end: 20090811
  4. EMEND [Concomitant]
     Dosage: DOSE: UNKNOWN
     Dates: start: 20090630, end: 20090811
  5. ONICIT [Concomitant]
     Dosage: DOSE: UNKNOWN
     Dates: start: 20090630, end: 20090811
  6. BETANOID [Concomitant]
     Dosage: DOSE: UNKNOWN
     Dates: start: 20090630, end: 20090811
  7. PHENERGAN [Concomitant]
     Dosage: DOSE: UNKNOWN
     Dates: start: 20090630, end: 20090811

REACTIONS (7)
  - ARRHYTHMIA [None]
  - FATIGUE [None]
  - MULTI-ORGAN FAILURE [None]
  - NEUTROPENIA [None]
  - NEUTROPENIC SEPSIS [None]
  - PNEUMONIA [None]
  - PORTAL VEIN THROMBOSIS [None]
